FAERS Safety Report 15019482 (Version 1)
Quarter: 2018Q2

REPORT INFORMATION
  Report Type: Spontaneous
  Country: US (occurrence: US)
  Receive Date: 20180617
  Receipt Date: 20180617
  Transmission Date: 20180711
  Serious: No
  Sender: FDA-Public Use
  Company Number: US-JNJFOC-20180606524

PATIENT
  Sex: Female
  Weight: 47.17 kg

DRUGS (1)
  1. INVEGA SUSTENNA [Suspect]
     Active Substance: PALIPERIDONE PALMITATE
     Indication: PRODUCT USED FOR UNKNOWN INDICATION
     Route: 030
     Dates: start: 20180424, end: 20180424

REACTIONS (7)
  - Weight increased [Unknown]
  - Inadequate diet [Not Recovered/Not Resolved]
  - Depressed mood [Not Recovered/Not Resolved]
  - Urine output increased [Not Recovered/Not Resolved]
  - Feeling abnormal [Not Recovered/Not Resolved]
  - Emotional poverty [Not Recovered/Not Resolved]
  - Hypermetabolism [Not Recovered/Not Resolved]

NARRATIVE: CASE EVENT DATE: 2018
